FAERS Safety Report 9354121 (Version 1)
Quarter: 2013Q2

REPORT INFORMATION
  Report Type: Spontaneous
  Country: US (occurrence: US)
  Receive Date: 20130618
  Receipt Date: 20130618
  Transmission Date: 20140414
  Serious: No
  Sender: FDA-Public Use
  Company Number: US-PFIZER INC-2013139153

PATIENT
  Age: 52 Year
  Sex: Female

DRUGS (6)
  1. XELJANZ [Suspect]
     Indication: RHEUMATOID ARTHRITIS
     Dosage: 5 MG, 2X/DAY
     Dates: start: 201305, end: 20130530
  2. ORENCIA [Suspect]
     Indication: RHEUMATOID ARTHRITIS
     Dosage: UNK, EVERY 4 WEEKS
     Dates: start: 20091014, end: 20091209
  3. ACTEMRA [Suspect]
     Indication: RHEUMATOID ARTHRITIS
     Dosage: UNK
     Dates: start: 20110428, end: 20120301
  4. PREDNISONE [Concomitant]
     Dosage: 35MG DAILY
  5. METHOTREXATE [Concomitant]
     Dosage: 25 MG, WEEKLY
  6. HYDROXYCHLOROQUINE [Concomitant]
     Dosage: UNK

REACTIONS (6)
  - Hypersensitivity [Not Recovered/Not Resolved]
  - Swelling [Not Recovered/Not Resolved]
  - Alopecia [Not Recovered/Not Resolved]
  - Madarosis [Not Recovered/Not Resolved]
  - Malaise [Not Recovered/Not Resolved]
  - General physical health deterioration [Not Recovered/Not Resolved]
